FAERS Safety Report 18355197 (Version 1)
Quarter: 2020Q4

REPORT INFORMATION
  Report Type: Spontaneous
  Country: BR (occurrence: BR)
  Receive Date: 20201007
  Receipt Date: 20201007
  Transmission Date: 20210114
  Serious: Yes (Other)
  Sender: FDA-Public Use
  Company Number: BR-SA-2020SA261552

PATIENT

DRUGS (4)
  1. UTROGESTAN [Concomitant]
     Active Substance: PROGESTERONE
     Dosage: UNK UNK, TID
     Route: 065
     Dates: start: 20200829, end: 20200922
  2. UTROGESTAN [Concomitant]
     Active Substance: PROGESTERONE
     Dosage: UNK, QID
     Route: 065
     Dates: start: 20200923, end: 20200924
  3. DTN-FOL [Concomitant]
     Dosage: UNK UNK, QD
     Route: 065
     Dates: start: 20200829
  4. CLEXANE [Suspect]
     Active Substance: ENOXAPARIN SODIUM
     Indication: ABORTION
     Dosage: UNK
     Route: 065
     Dates: start: 20200829, end: 20200924

REACTIONS (4)
  - Off label use [Unknown]
  - Abortion [Unknown]
  - Exposure during pregnancy [Unknown]
  - Device issue [Unknown]
